FAERS Safety Report 10501153 (Version 21)
Quarter: 2016Q4

REPORT INFORMATION
  Report Type: Report from Study
  Country: CA (occurrence: CA)
  Receive Date: 20141007
  Receipt Date: 20161213
  Transmission Date: 20170206
  Serious: Yes (Hospitalization, Other)
  Sender: FDA-Public Use
  Company Number: PHHY2014CA129283

PATIENT
  Age: 67 Year
  Sex: Male

DRUGS (4)
  1. AFINITOR [Suspect]
     Active Substance: EVEROLIMUS
     Indication: NEUROENDOCRINE TUMOUR
     Dosage: 5 MG, QD
     Route: 048
     Dates: start: 20150415
  2. SANDOSTATIN LAR DEPOT [Suspect]
     Active Substance: OCTREOTIDE ACETATE
     Indication: NEUROENDOCRINE TUMOUR
     Dosage: 30 MG, QMO (ONCE A MONTH)
     Route: 030
     Dates: start: 20131122
  3. SANDOSTATIN [Suspect]
     Active Substance: OCTREOTIDE ACETATE
     Indication: NEUROENDOCRINE TUMOUR
     Dosage: UNK UNK, ONCE/SINGLE
     Route: 058
     Dates: start: 20131113, end: 20131113
  4. SANDOSTATIN LAR DEPOT [Suspect]
     Active Substance: OCTREOTIDE ACETATE
     Dosage: 60 MG, QMO (ONCE A MONTH)
     Route: 030
     Dates: start: 20140529

REACTIONS (17)
  - White blood cell count decreased [Unknown]
  - Furuncle [Recovering/Resolving]
  - Dizziness [Recovered/Resolved]
  - Injection site discomfort [Unknown]
  - Heart valve incompetence [Recovering/Resolving]
  - Tooth abscess [Unknown]
  - Tooth infection [Recovered/Resolved]
  - Blood bilirubin increased [Unknown]
  - Gastric haemorrhage [Unknown]
  - Platelet count decreased [Unknown]
  - Weight decreased [Unknown]
  - Oral pain [Unknown]
  - Haemoglobin decreased [Unknown]
  - Urine analysis abnormal [Recovering/Resolving]
  - Serum serotonin increased [Unknown]
  - Dyspnoea exertional [Not Recovered/Not Resolved]
  - Dyspnoea [Not Recovered/Not Resolved]

NARRATIVE: CASE EVENT DATE: 201504
